FAERS Safety Report 10048540 (Version 3)
Quarter: 2014Q2

REPORT INFORMATION
  Report Type: Report from Study
  Country: NZ (occurrence: NZ)
  Receive Date: 20140331
  Receipt Date: 20140417
  Transmission Date: 20141212
  Serious: Yes (Hospitalization)
  Sender: FDA-Public Use
  Company Number: PHHY2013NZ091243

PATIENT
  Sex: Male

DRUGS (2)
  1. CLOZARIL [Suspect]
     Dosage: UNK
     Dates: start: 20110708
  2. CLOZARIL [Suspect]
     Dosage: UNK
     Dates: start: 20130917

REACTIONS (2)
  - Mental impairment [Unknown]
  - Drug abuse [Unknown]
